FAERS Safety Report 9607005 (Version 2)
Quarter: 2013Q4

REPORT INFORMATION
  Report Type: Report from Study
  Country: US (occurrence: US)
  Receive Date: 20131009
  Receipt Date: 20131009
  Transmission Date: 20140711
  Serious: Yes (Other)
  Sender: FDA-Public Use
  Company Number: US-ROCHE-724479

PATIENT
  Sex: 0

DRUGS (11)
  1. RITUXIMAB [Suspect]
     Indication: CHRONIC LYMPHOCYTIC LEUKAEMIA
     Dosage: PHASE I
     Route: 065
  2. RITUXIMAB [Suspect]
     Indication: RICHTER^S SYNDROME
     Dosage: PHASE II
     Route: 065
  3. RITUXIMAB [Suspect]
     Dosage: ON DAY 3 OF THE FIRST CYCLE AND DAY 1 OF SUBSEQUENT CYCLES
     Route: 042
  4. OXALIPLATIN [Suspect]
     Indication: CHRONIC LYMPHOCYTIC LEUKAEMIA
     Dosage: PHASE I
     Route: 065
  5. OXALIPLATIN [Suspect]
     Indication: RICHTER^S SYNDROME
     Dosage: PHASE II: ON DAYS 1-4
     Route: 065
  6. OXALIPLATIN [Suspect]
     Dosage: (2-HOUR INFUSION)
     Route: 042
  7. FLUDARABINE [Suspect]
     Indication: CHRONIC LYMPHOCYTIC LEUKAEMIA
     Dosage: PHASE I
     Route: 065
  8. FLUDARABINE [Suspect]
     Indication: RICHTER^S SYNDROME
     Dosage: PHASE II: DAYS 2-3 (DOSE LEVEL 1), DAYS 2-4 (DOSE LEVEL 2) OR DAYS 2-5 (DOSE LEVEL 3). WAS 30 MG/M2
     Route: 042
  9. CYTARABINE [Suspect]
     Indication: CHRONIC LYMPHOCYTIC LEUKAEMIA
     Dosage: PHASE I
     Route: 065
  10. CYTARABINE [Suspect]
     Indication: RICHTER^S SYNDROME
     Dosage: PHASE II: DAYS 2-3 (DOSE LEVEL 1), DAYS 2-4 (DOSE LEVEL 2) OR DAYS 2-5 (DOSE LEVEL 3). 0.5 G/M2 (2-H
     Route: 042
  11. PEGFILGRASTIM [Concomitant]
     Dosage: ON DAY 6
     Route: 058

REACTIONS (23)
  - Neutropenia [Unknown]
  - Thrombocytopenia [Unknown]
  - Infection [Unknown]
  - Anaemia [Unknown]
  - Neutropenic sepsis [Unknown]
  - Diarrhoea [Unknown]
  - Febrile neutropenia [Unknown]
  - Pyrexia [Unknown]
  - Dehydration [Unknown]
  - Fatigue [Unknown]
  - Nausea [Unknown]
  - Vomiting [Unknown]
  - Haemorrhage [Unknown]
  - Dyspnoea [Unknown]
  - Acute respiratory distress syndrome [Unknown]
  - Atrial fibrillation [Unknown]
  - Hypotension [Unknown]
  - Renal failure acute [Unknown]
  - Mental status changes [Unknown]
  - Syncope [Unknown]
  - Tumour lysis syndrome [Unknown]
  - Multi-organ failure [Unknown]
  - Hyperglycaemia [Unknown]
